FAERS Safety Report 9314014 (Version 1)
Quarter: 2013Q2

REPORT INFORMATION
  Report Type: Spontaneous
  Country: US (occurrence: None)
  Receive Date: 20130524
  Receipt Date: 20130524
  Transmission Date: 20140414
  Serious: Yes (Hospitalization)
  Sender: FDA-Public Use
  Company Number: None

PATIENT
  Age: 50 Year
  Sex: Female
  Weight: 105 kg

DRUGS (1)
  1. TOCILIZUMAB [Suspect]
     Indication: RHEUMATOID ARTHRITIS
     Dosage: 8 MG/KG EVERY 2 WEEKS IV DRIP
     Route: 041
     Dates: start: 20130304, end: 20130504

REACTIONS (2)
  - Cellulitis streptococcal [None]
  - Beta haemolytic streptococcal infection [None]
